FAERS Safety Report 9599719 (Version 1)
Quarter: 2013Q4

REPORT INFORMATION
  Report Type: Spontaneous
  Country: US (occurrence: US)
  Receive Date: 20131004
  Receipt Date: 20131004
  Transmission Date: 20140711
  Serious: No
  Sender: FDA-Public Use
  Company Number: US-AMGEN-USASP2013031014

PATIENT
  Age: 58 Year
  Sex: Male
  Weight: 200 kg

DRUGS (7)
  1. ENBREL [Suspect]
     Indication: PRODUCT USED FOR UNKNOWN INDICATION
     Dosage: 50 MG, BID
     Dates: end: 201302
  2. CO-Q10-CHLORELLA [Concomitant]
     Dosage: UNK
  3. HUMIRA [Concomitant]
     Dosage: 40 MG/0.8
  4. METOPROLOL TARTRATE [Concomitant]
     Dosage: 25 MG, UNK
  5. BUPROPION [Concomitant]
     Dosage: 200 MG, UNK
  6. LISINOPRIL [Concomitant]
     Dosage: 40 MG, UNK
  7. SIMVASTATIN [Concomitant]
     Dosage: 20 MG, UNK

REACTIONS (2)
  - Drug ineffective [Unknown]
  - Psoriasis [Unknown]
